FAERS Safety Report 12518874 (Version 1)
Quarter: 2016Q2

REPORT INFORMATION
  Report Type: Spontaneous
  Country: US (occurrence: US)
  Receive Date: 20160630
  Receipt Date: 20160630
  Transmission Date: 20160815
  Serious: Yes (Hospitalization)
  Sender: FDA-Public Use
  Company Number: US-GLAXOSMITHKLINE-US2016GSK092257

PATIENT
  Sex: Male

DRUGS (2)
  1. LASIX [Suspect]
     Active Substance: FUROSEMIDE
     Indication: CARDIAC FAILURE CONGESTIVE
  2. CARVEDILOL. [Suspect]
     Active Substance: CARVEDILOL
     Indication: CARDIAC FAILURE CONGESTIVE

REACTIONS (6)
  - Dyspnoea [Unknown]
  - Cardiomegaly [Unknown]
  - Drug ineffective [Unknown]
  - Pleural effusion [Unknown]
  - Blood potassium increased [Unknown]
  - Movement disorder [Unknown]
